APPROVED DRUG PRODUCT: FLUDEOXYGLUCOSE F18
Active Ingredient: FLUDEOXYGLUCOSE F-18
Strength: 20-240mCi/ML
Dosage Form/Route: INJECTABLE;INTRAVENOUS
Application: A203612 | Product #001 | TE Code: AP
Applicant: MAYO CLINIC PET RADIOCHEMISTRY FACILITY
Approved: Aug 5, 2013 | RLD: No | RS: No | Type: RX